FAERS Safety Report 4928163-X (Version None)
Quarter: 2006Q1

REPORT INFORMATION
  Report Type: 
  Country: None (occurrence: None)
  Receive Date: 20060223
  Receipt Date: 20060207
  Transmission Date: 20060701
  Serious: Yes (Hospitalization)
  Sender: FDA-Public Use
  Company Number: FR200602001730

PATIENT
  Age: 70 Year
  Sex: Male

DRUGS (4)
  1. PEMETREXED(PEMETREXED) VIAL, 500MG/M2 [Suspect]
     Indication: PLEURAL MESOTHELIOMA
     Dosage: 500 MG/M2, INTRAVENOUS
     Route: 042
     Dates: start: 20051001, end: 20051001
  2. VITAMIN B12 [Concomitant]
  3. FOLIC ACID [Concomitant]
  4. CORTICOSTEROIDS [Concomitant]

REACTIONS (6)
  - ANAEMIA [None]
  - GENERAL PHYSICAL HEALTH DETERIORATION [None]
  - INFLAMMATION [None]
  - NEOPLASM RECURRENCE [None]
  - RADIATION SKIN INJURY [None]
  - RECALL PHENOMENON [None]
